FAERS Safety Report 6676029-X (Version None)
Quarter: 2010Q2

REPORT INFORMATION
  Report Type: 
  Country: None (occurrence: None)
  Receive Date: 20100412
  Receipt Date: 20100330
  Transmission Date: 20101027
  Serious: No
  Sender: FDA-Public Use
  Company Number: 2010BI004370

PATIENT
  Age: 36 Year
  Sex: Female

DRUGS (1)
  1. TYSABRI [Suspect]
     Indication: MULTIPLE SCLEROSIS
     Route: 042
     Dates: start: 20091221

REACTIONS (5)
  - ASTHENIA [None]
  - COGNITIVE DISORDER [None]
  - FATIGUE [None]
  - NASOPHARYNGITIS [None]
  - SINUSITIS [None]
